FAERS Safety Report 13671485 (Version 1)
Quarter: 2017Q2

REPORT INFORMATION
  Report Type: Spontaneous
  Country: US (occurrence: US)
  Receive Date: 20170620
  Receipt Date: 20170620
  Transmission Date: 20170830
  Serious: Yes (Other)
  Sender: FDA-Public Use
  Company Number: US-ROCHE-653004

PATIENT
  Age: 55 Year
  Sex: Male
  Weight: 99.8 kg

DRUGS (9)
  1. XELODA [Suspect]
     Active Substance: CAPECITABINE
     Dosage: 1500 MG IN THE MORNING AND 2000 IN THE NIGHT; DOSAGE REDUCED
     Route: 048
  2. VITAMIN B12 [Concomitant]
     Active Substance: CYANOCOBALAMIN
     Dosage: SECOND DOSE ADMINISTERED ON 21 AUGUST 2009.DOSE REPORTED AS 1000
     Route: 065
  3. ALOXI [Concomitant]
     Active Substance: PALONOSETRON HYDROCHLORIDE
     Dosage: SECOND DOSE ADMINISTERED ON 31 JULY 2009 AND THIRD DOSE ON 21 AUGUST 2009
     Route: 042
  4. VENOFER [Concomitant]
     Active Substance: IRON SUCROSE
     Dosage: SECOND DOSE ADMINISTERED ON 31 JULY 2009 AND THIRD DOSE ON 21 AUGUST 2009
     Route: 042
  5. OXALIPLATIN. [Concomitant]
     Active Substance: OXALIPLATIN
     Indication: COLORECTAL CANCER
     Dosage: SECOND DOSE ADMINISTERED ON 31 JULY 2009 AND THIRD DOSE ON 21 AUGUST 2009
     Route: 042
  6. PROMETHAZINE [Concomitant]
     Active Substance: PROMETHAZINE\PROMETHAZINE HYDROCHLORIDE
     Dosage: AS NECESSARY
     Route: 048
  7. DECADRON [Concomitant]
     Active Substance: DEXAMETHASONE
     Indication: PREMEDICATION
     Dosage: SECOND DOSE ADMINISTERED ON 31 JULY 2009 AND THIRD DOSE ON 21 AUGUST 2009
     Route: 042
  8. ATIVAN [Concomitant]
     Active Substance: LORAZEPAM
     Dosage: SECOND DOSE ADMINISTERED ON 31 JULY 2009 AND THIRD DOSE ON 21 AUGUST 2009; DOSE REPORTED AS 1
     Route: 065
  9. XELODA [Suspect]
     Active Substance: CAPECITABINE
     Indication: COLORECTAL CANCER
     Dosage: 2000 MG IN THE MORNING AND 2500 MG IN THE NIGHT. 2 CYCLE ADMINISTERED ON 31 JULY 2009
     Route: 048

REACTIONS (5)
  - Hyperbilirubinaemia [Recovering/Resolving]
  - Blood glucose increased [Unknown]
  - Iron deficiency [Unknown]
  - Aspartate aminotransferase increased [Unknown]
  - Nausea [Unknown]

NARRATIVE: CASE EVENT DATE: 20090710
